FAERS Safety Report 9191668 (Version 2)
Quarter: 2013Q2

REPORT INFORMATION
  Report Type: Spontaneous
  Country: AU (occurrence: AU)
  Receive Date: 20130326
  Receipt Date: 20130419
  Transmission Date: 20140414
  Serious: Yes (Life-Threatening, Hospitalization, Disabling, Other)
  Sender: FDA-Public Use
  Company Number: AU-B.I. PHARMACEUTICALS,INC./RIDGEFIELD-2013-AU-00308AU

PATIENT
  Age: 78 Year
  Sex: Male

DRUGS (26)
  1. PRADAXA [Suspect]
     Indication: ATRIAL FIBRILLATION
     Dosage: 220 MG
  2. ATORVASTATIN [Suspect]
  3. AMIODARONE [Suspect]
  4. ALLOPURINOL [Concomitant]
  5. ASPIRIN [Concomitant]
  6. AVANZA [Concomitant]
     Dosage: 90 MG
  7. BICOR [Concomitant]
  8. DUROGESIC [Concomitant]
  9. FRUSEMIDE [Concomitant]
  10. GASTROSTOP [Concomitant]
  11. GAVISCON [Concomitant]
  12. KENACOMB [Concomitant]
  13. OSMOLAX [Concomitant]
  14. PANADEINE FORTE [Concomitant]
  15. PANAMAX [Concomitant]
  16. PARIET [Concomitant]
     Dosage: 80 MG
  17. PREDNISONE [Concomitant]
  18. SENOKOT [Concomitant]
  19. SPIRACTIN [Concomitant]
     Dosage: 25 MG
  20. STEMETIL [Concomitant]
  21. TEMAZE [Concomitant]
     Dosage: 10 MG
  22. ULCYTE [Concomitant]
     Dosage: 4 G
  23. MOTILIUM [Concomitant]
     Dosage: 30 MG
  24. ALODORM [Concomitant]
     Dosage: 5 MG
  25. RAMIPRIL [Concomitant]
     Dosage: 1.25 MG
  26. AMIODARONE [Concomitant]

REACTIONS (25)
  - Cerebrovascular accident [Recovered/Resolved with Sequelae]
  - Renal failure acute [Unknown]
  - Dehydration [Unknown]
  - Vertigo positional [Unknown]
  - Staphylococcal bacteraemia [Unknown]
  - Aphasia [Unknown]
  - VIIth nerve paralysis [Unknown]
  - Hemiparesis [Unknown]
  - Dysphagia [Unknown]
  - Urinary tract infection [Unknown]
  - Constipation [Unknown]
  - Urinary retention [Unknown]
  - Hypotension [Unknown]
  - Musculoskeletal chest pain [Unknown]
  - Myopathy [Unknown]
  - Post-tussive vomiting [Unknown]
  - Dermatitis contact [Unknown]
  - Diarrhoea [Unknown]
  - Hypoalbuminaemia [Unknown]
  - Oedema peripheral [Unknown]
  - Hypokalaemia [Unknown]
  - Hyperthyroidism [Unknown]
  - Toxicity to various agents [Unknown]
  - Contusion [Unknown]
  - Anaemia [Unknown]
